FAERS Safety Report 9745158 (Version 2)
Quarter: 2013Q4

REPORT INFORMATION
  Report Type: Report from Study
  Country: DE (occurrence: DE)
  Receive Date: 20131211
  Receipt Date: 20131211
  Transmission Date: 20140711
  Serious: Yes (Hospitalization)
  Sender: FDA-Public Use
  Company Number: DE-ROCHE-1300939

PATIENT
  Age: 76 Year
  Sex: Female
  Weight: 58 kg

DRUGS (39)
  1. BLINDED GDC-0941 (PI3K INHIBITOR) [Suspect]
     Indication: NON-SMALL CELL LUNG CANCER
     Dosage: MOST RECENT DOSE PRIOR TO SAE: 03/NOV/2013
     Route: 048
     Dates: start: 20130814
  2. BEVACIZUMAB [Suspect]
     Indication: NON-SMALL CELL LUNG CANCER
     Dosage: MOST RECENT DOSE PRIOR TO SAE: 21/OCT/2013, 855 MG
     Route: 042
     Dates: start: 20130814
  3. PACLITAXEL [Suspect]
     Indication: NON-SMALL CELL LUNG CANCER
     Dosage: MOST RECENT DOSE PRIOR TO SAE: 21/OCT/2013, 314 MG
     Route: 042
     Dates: start: 20130814
  4. CARBOPLATIN [Suspect]
     Indication: NON-SMALL CELL LUNG CANCER
     Dosage: MOST RECENT DOSE PRIOR TO SAE: 21/OCT/2013, 479 MG
     Route: 042
     Dates: start: 20130814
  5. TAVEGIL [Concomitant]
     Dosage: 1 AMPULE ON DAY 1
     Route: 042
     Dates: start: 20130814, end: 20131021
  6. XIMOVAN [Concomitant]
     Indication: PROPHYLAXIS
     Route: 048
     Dates: start: 20130928
  7. IMODIUM [Concomitant]
     Indication: DIARRHOEA
     Route: 060
     Dates: start: 20130926
  8. NACL .9% [Concomitant]
     Dosage: ON DAY 1
     Route: 042
     Dates: start: 20130814, end: 20131021
  9. NACL .9% [Concomitant]
     Route: 042
     Dates: start: 20131113, end: 20131114
  10. FORTECORTIN [Concomitant]
     Dosage: ON DAY 0 AND DAY 1
     Route: 048
     Dates: start: 20130813, end: 20131021
  11. ZOFRAN [Concomitant]
     Dosage: ON DAY 1
     Route: 048
     Dates: start: 20130814, end: 20131021
  12. ZOFRAN [Concomitant]
     Dosage: DAY 1
     Route: 042
     Dates: start: 20130814, end: 20131021
  13. RANITIDIN [Concomitant]
     Dosage: 1 AMPULE ON DAY 1
     Route: 042
     Dates: start: 20130814, end: 20131021
  14. LYRICA [Concomitant]
     Indication: POLYNEUROPATHY
     Route: 048
     Dates: start: 20131023, end: 20131023
  15. LYRICA [Concomitant]
     Route: 048
     Dates: start: 20131106
  16. SOLU-DECORTIN H [Concomitant]
     Indication: RASH
     Route: 042
     Dates: start: 20131021, end: 20131021
  17. SOLU-DECORTIN H [Concomitant]
     Route: 042
     Dates: start: 20131022, end: 20131022
  18. SOLU-DECORTIN H [Concomitant]
     Route: 042
     Dates: start: 20131018, end: 20131018
  19. SOLU-DECORTIN H [Concomitant]
     Route: 042
     Dates: start: 20131107, end: 20131107
  20. PARACETAMOL [Concomitant]
     Indication: PYREXIA
     Route: 048
     Dates: start: 20131022, end: 20131022
  21. PARACETAMOL [Concomitant]
     Route: 048
     Dates: start: 20131107, end: 20131107
  22. PARACETAMOL [Concomitant]
     Route: 042
     Dates: start: 20131108, end: 20131108
  23. PARACETAMOL [Concomitant]
     Route: 048
     Dates: start: 20131109, end: 20131109
  24. PARACETAMOL [Concomitant]
     Route: 048
     Dates: start: 20131111, end: 20131111
  25. FENISTIL (GERMANY) [Concomitant]
     Indication: RASH
     Route: 042
     Dates: start: 20131018, end: 20131018
  26. ALFASON [Concomitant]
     Indication: RASH
     Route: 061
     Dates: start: 20131019, end: 20131105
  27. PERENTEROL FORTE [Concomitant]
     Indication: POLYNEUROPATHY
     Route: 048
     Dates: start: 20131106, end: 20131114
  28. PERENTEROL FORTE [Concomitant]
     Route: 048
     Dates: start: 20131115
  29. CIPRAMIL [Concomitant]
     Indication: DEPRESSION
     Route: 048
     Dates: start: 20131106, end: 20131114
  30. IRENAT [Concomitant]
     Route: 048
     Dates: start: 20131106, end: 20131106
  31. AUGMENTIN [Concomitant]
     Route: 048
     Dates: start: 20131106, end: 20131108
  32. SAMSCA [Concomitant]
     Indication: HYPONATRAEMIA
     Route: 048
     Dates: start: 20131106, end: 20131106
  33. METOCLOPRAMID [Concomitant]
     Indication: PROPHYLAXIS OF NAUSEA AND VOMITING
     Route: 042
     Dates: start: 20131106, end: 20131108
  34. PIPRIL [Concomitant]
     Route: 042
     Dates: start: 20131108, end: 20131112
  35. COMBACTAM [Concomitant]
     Route: 042
     Dates: start: 20131108, end: 20131113
  36. CIPROBAY (GERMANY) [Concomitant]
     Route: 042
     Dates: start: 20131111, end: 20131114
  37. CIPROFLOXACIN [Concomitant]
     Route: 048
     Dates: start: 20131115
  38. NOVALGIN [Concomitant]
     Indication: SPINAL OSTEOARTHRITIS
     Route: 048
     Dates: start: 20131106, end: 20131106
  39. NOVALGIN [Concomitant]
     Route: 048
     Dates: start: 20131110, end: 20131110

REACTIONS (1)
  - Pancytopenia [Not Recovered/Not Resolved]
